FAERS Safety Report 22379170 (Version 1)
Quarter: 2023Q2

REPORT INFORMATION
  Report Type: Spontaneous
  Country: US (occurrence: US)
  Receive Date: 20230529
  Receipt Date: 20230529
  Transmission Date: 20230721
  Serious: No
  Sender: FDA-Public Use
  Company Number: US-GALDERMA-US2023007492

PATIENT

DRUGS (6)
  1. PROACTIV MD ADAPALENE ACNE TREATMENT [Suspect]
     Active Substance: ADAPALENE
     Indication: Acne
     Dosage: 1 DOSAGE FORM, REGULARLY, PEA SIZE
     Route: 061
     Dates: start: 2021
  2. PROACTIV MD ADAPALENE ACNE TREATMENT [Suspect]
     Active Substance: ADAPALENE
     Indication: Scar
  3. Proactiv MD Ultra Gentle Cleanser [Concomitant]
     Indication: Acne
     Dosage: 1 DOSAGE FORM, BID, PEA SIZE, CHEEKS AND CHIN
     Route: 061
     Dates: start: 2021
  4. Proactiv MD Ultra Gentle Cleanser [Concomitant]
     Indication: Scar
  5. Proactiv MD Ultra Hydrating Moisturizer [Concomitant]
     Indication: Acne
     Dosage: 1 DOSAGE FORM, BID, PEA SIZE, CHEEKS AND CHIN
     Route: 061
     Dates: start: 2021
  6. Proactiv MD Ultra Hydrating Moisturizer [Concomitant]
     Indication: Scar

REACTIONS (1)
  - Drug ineffective [Unknown]
